FAERS Safety Report 7550094-X (Version None)
Quarter: 2011Q2

REPORT INFORMATION
  Report Type: 
  Country: None (occurrence: None)
  Receive Date: 20110615
  Receipt Date: 20110606
  Transmission Date: 20111010
  Serious: Yes (Hospitalization, Other)
  Sender: FDA-Public Use
  Company Number: US-ASTRAZENECA-2011SE32379

PATIENT
  Age: 90 Year
  Sex: Female

DRUGS (2)
  1. NEXIUM [Suspect]
     Route: 048
  2. TOPROL-XL [Suspect]
     Route: 048

REACTIONS (10)
  - PANCREATIC CARCINOMA [None]
  - HOSPITALISATION [None]
  - MALAISE [None]
  - OESOPHAGEAL DISORDER [None]
  - VISUAL ACUITY REDUCED [None]
  - ILL-DEFINED DISORDER [None]
  - PAIN [None]
  - OVARIAN CYST [None]
  - FALL [None]
  - NEOPLASM MALIGNANT [None]
